FAERS Safety Report 18507740 (Version 1)
Quarter: 2020Q4

REPORT INFORMATION
  Report Type: Spontaneous
  Country: PL (occurrence: PL)
  Receive Date: 20201116
  Receipt Date: 20201116
  Transmission Date: 20210114
  Serious: Yes (Other)
  Sender: FDA-Public Use
  Company Number: PL-B.I. PHARMACEUTICALS,INC./RIDGEFIELD-2020-BI-060807

PATIENT
  Age: 65 Year
  Sex: Female

DRUGS (3)
  1. PEGFILGRASTIM [Concomitant]
     Active Substance: PEGFILGRASTIM
     Indication: PRODUCT USED FOR UNKNOWN INDICATION
     Route: 065
  2. DOCETAXEL. [Concomitant]
     Active Substance: DOCETAXEL
     Indication: LUNG CANCER METASTATIC
     Dosage: 75 MG / M2 BY INTRAVENOUS INFUSION EVERY 21 DAYS I.V.
     Route: 042
     Dates: start: 201810, end: 201907
  3. VARGATEF [Suspect]
     Active Substance: NINTEDANIB
     Indication: LUNG CANCER METASTATIC
     Dosage: 2 X 200 MG ORALLY ON DAYS 2-21 CYCLE.
     Route: 048
     Dates: start: 201810, end: 201907

REACTIONS (5)
  - Alanine aminotransferase increased [Recovered/Resolved]
  - Skin lesion [Unknown]
  - Diarrhoea [Unknown]
  - Transaminases increased [Recovered/Resolved]
  - Injection site infection [Unknown]

NARRATIVE: CASE EVENT DATE: 201907
